FAERS Safety Report 8172473-2 (Version None)
Quarter: 2012Q1

REPORT INFORMATION
  Report Type: 
  Country: None (occurrence: None)
  Receive Date: 20120227
  Receipt Date: 20120227
  Transmission Date: 20120608
  Serious: Yes (Hospitalization)
  Sender: FDA-Public Use
  Company Number: None

PATIENT
  Age: 60 Year
  Sex: Female
  Weight: 54.8 kg

DRUGS (12)
  1. ADVAIR DISKUS 100/50 [Concomitant]
  2. PAZOPANIB 400MG [Suspect]
     Indication: SMALL CELL LUNG CANCER STAGE UNSPECIFIED
     Dosage: 800MG PO DAILY
     Route: 048
     Dates: start: 20111214, end: 20120208
  3. OMEPRAZOLE [Concomitant]
  4. ACETAMINOPHEN [Concomitant]
  5. MEGACE [Concomitant]
  6. LEVOFLOXACIN [Concomitant]
  7. SENNA [Concomitant]
  8. TIOTROPIUM [Concomitant]
  9. COLACE [Concomitant]
  10. TEMAZEPAM [Concomitant]
  11. ALBUTEROL [Concomitant]
  12. OXYCODONE HCL [Concomitant]

REACTIONS (7)
  - SMALL CELL LUNG CANCER STAGE UNSPECIFIED [None]
  - DYSPNOEA [None]
  - LUNG CONSOLIDATION [None]
  - NEOPLASM PROGRESSION [None]
  - PRODUCTIVE COUGH [None]
  - GENERAL PHYSICAL HEALTH DETERIORATION [None]
  - PNEUMONIA [None]
